FAERS Safety Report 17948252 (Version 1)
Quarter: 2020Q2

REPORT INFORMATION
  Report Type: Spontaneous
  Country: US (occurrence: US)
  Receive Date: 20200626
  Receipt Date: 20200626
  Transmission Date: 20200714
  Serious: Yes (Other)
  Sender: FDA-Public Use
  Company Number: US-AMGEN INC.-USASP2020100980

PATIENT
  Age: 41 Year
  Sex: Male

DRUGS (3)
  1. AIMOVIG [Suspect]
     Active Substance: ERENUMAB-AOOE
     Indication: MIGRAINE
     Dosage: 70 MILLIGRAM
     Route: 065
  2. AIMOVIG [Suspect]
     Active Substance: ERENUMAB-AOOE
     Dosage: 140 MILLIGRAM
     Route: 065
  3. NEXIUM I.V. [Concomitant]
     Active Substance: ESOMEPRAZOLE SODIUM
     Dosage: 20 MILLIGRAM

REACTIONS (5)
  - Constipation [Recovered/Resolved]
  - Pancreatitis [Recovered/Resolved]
  - Therapeutic response decreased [Unknown]
  - Appendicitis [Recovered/Resolved]
  - Prostatomegaly [Recovered/Resolved]

NARRATIVE: CASE EVENT DATE: 20200618
